FAERS Safety Report 7958103-0 (Version None)
Quarter: 2011Q4

REPORT INFORMATION
  Report Type: 
  Country: None (occurrence: None)
  Receive Date: 20111130
  Receipt Date: 20111121
  Transmission Date: 20120403
  Serious: Yes (Life-Threatening)
  Sender: FDA-Public Use
  Company Number: 1118039

PATIENT
  Age: 2 Day
  Sex: Female

DRUGS (1)
  1. LIDOCAINE HCL [Suspect]
     Indication: LOCAL ANAESTHESIA

REACTIONS (2)
  - METHAEMOGLOBINAEMIA [None]
  - DISEASE COMPLICATION [None]
